FAERS Safety Report 5338087-4 (Version None)
Quarter: 2007Q2

REPORT INFORMATION
  Report Type: 
  Country: None (occurrence: None)
  Receive Date: 20070530
  Receipt Date: 20070523
  Transmission Date: 20071010
  Serious: Yes (Hospitalization)
  Sender: FDA-Public Use
  Company Number: PHNU2007DE01884

PATIENT
  Sex: Female

DRUGS (3)
  1. FEMARA [Suspect]
     Indication: BREAST CANCER
     Dosage: 2.5 MG/DAY
     Route: 048
     Dates: start: 20060901
  2. VOLTAREN RESINAT ^NOVARTIS^ [Concomitant]
     Indication: ARTHRALGIA
     Dosage: 2 DF/DAY
     Route: 048
  3. DIOVAN [Concomitant]
     Indication: HYPERTENSION
     Dosage: 160 MG/DAY
     Route: 048

REACTIONS (4)
  - ARTHRALGIA [None]
  - BONE PAIN [None]
  - HIP ARTHROPLASTY [None]
  - MYALGIA [None]
